FAERS Safety Report 5035748-1 (Version None)
Quarter: 2006Q2

REPORT INFORMATION
  Report Type: 
  Country: None (occurrence: None)
  Receive Date: 20060526
  Receipt Date: 20060207
  Transmission Date: 20061013
  Serious: No
  Sender: FDA-Public Use
  Company Number: 221850

PATIENT
  Sex: Female

DRUGS (3)
  1. RAPTIVA [Suspect]
     Indication: PSORIASIS
     Dosage: 0.6 ML, 1/WEEK, SUBCUTANEOUS
     Route: 058
     Dates: start: 20051226
  2. TOPICAL MEDICATION (GENERIC COMPONENT(S) NOT KNOWN) [Concomitant]
  3. LASIX [Concomitant]

REACTIONS (1)
  - PSORIASIS [None]
